FAERS Safety Report 6263266-1 (Version None)
Quarter: 2009Q3

REPORT INFORMATION
  Report Type: 
  Country: None (occurrence: None)
  Receive Date: 20090710
  Receipt Date: 20090701
  Transmission Date: 20100115
  Serious: Yes (Other)
  Sender: FDA-Public Use
  Company Number: US-JNJFOC-20090700657

PATIENT
  Sex: Female
  Weight: 85.28 kg

DRUGS (13)
  1. REMICADE [Suspect]
     Indication: PSORIASIS
     Route: 042
  2. ADDERALL 10 [Concomitant]
  3. SYNTHROID [Concomitant]
  4. ZOLOFT [Concomitant]
  5. DEPAKOTE [Concomitant]
  6. ATIVAN [Concomitant]
  7. TRAZODONE HCL [Concomitant]
  8. SINGULAIR [Concomitant]
  9. LIPITOR [Concomitant]
  10. PREVACID [Concomitant]
  11. ADVAIR HFA [Concomitant]
  12. ALBUTEROL [Concomitant]
  13. VICODIN [Concomitant]

REACTIONS (1)
  - LUPUS-LIKE SYNDROME [None]
